FAERS Safety Report 25298309 (Version 3)
Quarter: 2025Q2

REPORT INFORMATION
  Report Type: Report from Study
  Country: US (occurrence: US)
  Receive Date: 20250512
  Receipt Date: 20250527
  Transmission Date: 20250717
  Serious: Yes (Other)
  Sender: AMGEN
  Company Number: US-AMGEN-USASP2025090167

PATIENT
  Age: 68 Year
  Sex: Female

DRUGS (2)
  1. REPATHA [Suspect]
     Active Substance: EVOLOCUMAB
     Indication: Hypercholesterolaemia
     Dosage: 140 MILLIGRAM, Q2WK
     Route: 058
     Dates: start: 20250202, end: 20250409
  2. REPATHA [Suspect]
     Active Substance: EVOLOCUMAB
     Indication: Blood cholesterol increased
     Dosage: 140 MILLIGRAM, Q2WK
     Route: 058
     Dates: end: 20250409

REACTIONS (10)
  - Myasthenia gravis [Recovering/Resolving]
  - Sciatica [Recovering/Resolving]
  - Arthralgia [Recovering/Resolving]
  - Brain fog [Recovering/Resolving]
  - Bowel movement irregularity [Recovering/Resolving]
  - Abnormal faeces [Recovering/Resolving]
  - Sleep disorder [Recovering/Resolving]
  - Plantar fasciitis [Recovering/Resolving]
  - Fatigue [Recovering/Resolving]
  - Flatulence [Recovering/Resolving]

NARRATIVE: CASE EVENT DATE: 20250101
